FAERS Safety Report 8650149 (Version 2)
Quarter: 2012Q4

REPORT INFORMATION
  Report Type: 
  Country: US (occurrence: US)
  Receive Date: 20120705
  Receipt Date: 20120913
  Transmission Date: 20130627
  Serious: Yes (Other)
  Sender: FDA-Public Use
  Company Number: US-ROCHE-784254

PATIENT
  Age: 22 None
  Sex: Male
  Weight: 54.48 kg

DRUGS (6)
  1. ACCUTANE [Suspect]
     Indication: ACNE
     Route: 065
  2. ACCUTANE [Suspect]
     Route: 065
     Dates: start: 200110, end: 200203
  3. ACCUTANE [Suspect]
     Route: 065
     Dates: start: 200206, end: 200209
  4. KENALOG [Concomitant]
  5. DORYX (UNITED STATES) [Concomitant]
  6. PEPCID [Concomitant]

REACTIONS (11)
  - Inflammatory bowel disease [Unknown]
  - Colitis ulcerative [Unknown]
  - Emotional distress [Unknown]
  - Depression [Unknown]
  - Chapped lips [Unknown]
  - Blood cholesterol increased [Unknown]
  - Lip dry [Unknown]
  - Dry skin [Unknown]
  - Epistaxis [Unknown]
  - Nasal dryness [Unknown]
  - Cheilitis [Unknown]
